FAERS Safety Report 12955627 (Version 1)
Quarter: 2016Q4

REPORT INFORMATION
  Report Type: Spontaneous
  Country: US (occurrence: US)
  Receive Date: 20161117
  Receipt Date: 20161117
  Transmission Date: 20170207
  Serious: No
  Sender: FDA-Public Use
  Company Number: None

PATIENT
  Age: 64 Year
  Sex: Female

DRUGS (1)
  1. HUMIRA [Suspect]
     Active Substance: ADALIMUMAB
     Indication: CROHN^S DISEASE
     Route: 058
     Dates: start: 201601, end: 20160911

REACTIONS (5)
  - Herpes zoster [None]
  - Therapy cessation [None]
  - Crohn^s disease [None]
  - Disease recurrence [None]
  - Bronchitis [None]

NARRATIVE: CASE EVENT DATE: 20160911
